FAERS Safety Report 6740278-2 (Version None)
Quarter: 2010Q2

REPORT INFORMATION
  Report Type: 
  Country: None (occurrence: None)
  Receive Date: 20100525
  Receipt Date: 20100518
  Transmission Date: 20101027
  Serious: Yes (Other)
  Sender: FDA-Public Use
  Company Number: JP-MERCK-1005USA02929

PATIENT
  Sex: Female

DRUGS (2)
  1. JANUVIA [Suspect]
     Indication: DIABETES MELLITUS
     Route: 048
     Dates: start: 20100201
  2. HUMULIN R [Suspect]
     Indication: DIABETES MELLITUS
     Route: 058

REACTIONS (2)
  - HYPOGLYCAEMIC COMA [None]
  - HYPOTHERMIA [None]
